FAERS Safety Report 10403360 (Version 1)
Quarter: 2014Q3

REPORT INFORMATION
  Report Type: Spontaneous
  Country: US (occurrence: None)
  Receive Date: 20140820
  Receipt Date: 20140820
  Transmission Date: 20150326
  Serious: Yes (Other)
  Sender: FDA-Public Use
  Company Number: None

PATIENT
  Age: 67 Year
  Sex: Male
  Weight: 90.72 kg

DRUGS (5)
  1. COMPLETE MULTIVITAMIN FOR MEN [Concomitant]
  2. DILTIAZEM [Concomitant]
     Active Substance: DILTIAZEM
  3. TRIAMTERGNE [Concomitant]
  4. ACCUPRIL [Concomitant]
     Active Substance: QUINAPRIL HYDROCHLORIDE
  5. LYRICA [Suspect]
     Active Substance: PREGABALIN
     Indication: PAIN IN EXTREMITY
     Dosage: 75 MG, 30, 1 A DAY, MOUTH
     Route: 048
     Dates: start: 20131231, end: 20140125

REACTIONS (1)
  - Hypoaesthesia [None]

NARRATIVE: CASE EVENT DATE: 201401
